FAERS Safety Report 16465381 (Version 1)
Quarter: 2019Q2

REPORT INFORMATION
  Report Type: Spontaneous
  Country: BE (occurrence: BE)
  Receive Date: 20190621
  Receipt Date: 20190621
  Transmission Date: 20190711
  Serious: Yes (Hospitalization, Other)
  Sender: FDA-Public Use
  Company Number: BE-ASTRAZENECA-2019SE88282

PATIENT
  Age: 54 Year
  Sex: Male

DRUGS (2)
  1. METFORMINE [Concomitant]
     Active Substance: METFORMIN HYDROCHLORIDE
     Indication: TYPE 2 DIABETES MELLITUS
  2. FORXIGA [Suspect]
     Active Substance: DAPAGLIFLOZIN
     Indication: TYPE 2 DIABETES MELLITUS
     Route: 048

REACTIONS (10)
  - Pyelonephritis [Unknown]
  - Bladder diverticulum [Unknown]
  - Malaise [Unknown]
  - Urinary retention [Unknown]
  - Hydronephrosis [Unknown]
  - Urinary tract infection bacterial [Unknown]
  - Eating disorder [Unknown]
  - Gait disturbance [Unknown]
  - Benign prostatic hyperplasia [Unknown]
  - Bladder wall calcification [Unknown]

NARRATIVE: CASE EVENT DATE: 20190506
